FAERS Safety Report 16956953 (Version 1)
Quarter: 2019Q4

REPORT INFORMATION
  Report Type: Spontaneous
  Country: US (occurrence: US)
  Receive Date: 20191023
  Receipt Date: 20191023
  Transmission Date: 20200122
  Serious: No
  Sender: FDA-Public Use
  Company Number: None

PATIENT
  Age: 35 Year
  Sex: Male
  Weight: 105.75 kg

DRUGS (1)
  1. LEVOFLOXACIN 500 MG TAB [Suspect]
     Active Substance: LEVOFLOXACIN
     Indication: POSTOPERATIVE CARE
     Dosage: ?          QUANTITY:1 TABLET(S);?
     Route: 048
     Dates: start: 20190929, end: 20191020

REACTIONS (2)
  - Hallucination [None]
  - Sleep terror [None]

NARRATIVE: CASE EVENT DATE: 20191020
